FAERS Safety Report 5611930-7 (Version None)
Quarter: 2008Q1

REPORT INFORMATION
  Report Type: 
  Country: None (occurrence: None)
  Receive Date: 20080131
  Receipt Date: 20080131
  Transmission Date: 20080703
  Serious: Yes (Hospitalization)
  Sender: FDA-Public Use
  Company Number: None

PATIENT
  Sex: Female
  Weight: 58.2 kg

DRUGS (2)
  1. CISPLATIN [Suspect]
     Dosage: 78 MG
  2. NAVELBINE [Suspect]
     Dosage: 93.6 MG

REACTIONS (6)
  - DEEP VEIN THROMBOSIS [None]
  - INTERNATIONAL NORMALISED RATIO INCREASED [None]
  - NEUTROPHIL COUNT ABNORMAL [None]
  - PROTHROMBIN TIME PROLONGED [None]
  - PYREXIA [None]
  - SCLERAL HAEMORRHAGE [None]
